FAERS Safety Report 6097123-0 (Version None)
Quarter: 2009Q1

REPORT INFORMATION
  Report Type: 
  Country: None (occurrence: None)
  Receive Date: 20090227
  Receipt Date: 20090219
  Transmission Date: 20090719
  Serious: Yes (Other)
  Sender: FDA-Public Use
  Company Number: US-AMGEN-QUU334794

PATIENT
  Sex: Male

DRUGS (2)
  1. ENBREL [Suspect]
     Indication: PSORIATIC ARTHROPATHY
     Route: 058
     Dates: start: 20050808
  2. ENBREL [Suspect]
     Indication: PSORIASIS

REACTIONS (2)
  - HAEMOGLOBIN DECREASED [None]
  - PRECANCEROUS SKIN LESION [None]
